FAERS Safety Report 4810916-X (Version None)
Quarter: 2005Q4

REPORT INFORMATION
  Report Type: 
  Country: None (occurrence: None)
  Receive Date: 20051027
  Receipt Date: 20050425
  Transmission Date: 20060501
  Serious: Yes (Death, Hospitalization)
  Sender: FDA-Public Use
  Company Number: US-SOLVAY-00205001339

PATIENT
  Age: 419 Month
  Sex: Male
  Weight: 92 kg

DRUGS (10)
  1. DURAGESIC-100 [Concomitant]
     Indication: BACK PAIN
     Dosage: DAILY DOSE:  UNKNOWN
     Route: 061
  2. ANDROGEL [Suspect]
     Indication: BLOOD TESTOSTERONE DECREASED
     Dosage: DAILY DOSE: 5 GRAM(S)
     Route: 062
     Dates: start: 20040701, end: 20041101
  3. ANDROGEL [Suspect]
     Dosage: DAILY DOSE: 10 GRAM(S)
     Route: 062
     Dates: start: 20041101
  4. PLAVIX [Concomitant]
     Indication: ILL-DEFINED DISORDER
     Dosage: DAILY DOSE: 75 MILLIGRAM(S)
     Route: 048
  5. NEURONTIN [Concomitant]
     Indication: BACK PAIN
     Dosage: DAILY DOSE: 1600 MILLIGRAM(S)
     Route: 048
  6. LEXAPRO [Concomitant]
     Indication: ILL-DEFINED DISORDER
     Dosage: DAILY DOSE: 20 MILLIGRAM(S)
     Route: 048
  7. LOPRESSOR [Concomitant]
     Indication: CARDIAC DISORDER
     Dosage: DAILY DOSE: 100 MILLIGRAM(S)
     Route: 048
  8. ZOCOR [Concomitant]
     Indication: BLOOD CHOLESTEROL
     Dosage: DAILY DOSE: 20 MILLIGRAM(S)
     Route: 048
  9. ASPIRIN [Concomitant]
     Indication: CARDIAC DISORDER
     Dosage: DAILY DOSE: 325 MILLIGRAM(S)
     Route: 048
  10. NITROGLYCERIN [Concomitant]
     Indication: ILL-DEFINED DISORDER
     Dosage: DAILY DOSE:  UNKNOWN
     Route: 048

REACTIONS (2)
  - DRUG INEFFECTIVE [None]
  - MYOCARDIAL INFARCTION [None]
